FAERS Safety Report 7150176-0 (Version None)
Quarter: 2010Q4

REPORT INFORMATION
  Report Type: 
  Country: None (occurrence: None)
  Receive Date: 20101210
  Receipt Date: 20101203
  Transmission Date: 20110411
  Serious: Yes (Hospitalization)
  Sender: FDA-Public Use
  Company Number: US-BRISTOL-MYERS SQUIBB COMPANY-15422017

PATIENT
  Age: 79 Year
  Sex: Female
  Weight: 50 kg

DRUGS (4)
  1. PRAVACHOL [Suspect]
     Dosage: STARTED 12 YRS AGO, CHANGED TO PRAVASTATIN APR06 OR APR07.
  2. PRAVASTATIN SODIUM [Suspect]
  3. FEMARA [Concomitant]
  4. FOSAMAX [Concomitant]

REACTIONS (5)
  - DIVERTICULITIS [None]
  - DRY SKIN [None]
  - INFLUENZA [None]
  - PRURITUS [None]
  - WEIGHT DECREASED [None]
